FAERS Safety Report 7224624-1 (Version None)
Quarter: 2011Q1

REPORT INFORMATION
  Report Type: 
  Country: None (occurrence: None)
  Receive Date: 20110113
  Receipt Date: 20110106
  Transmission Date: 20110831
  Serious: Yes (Hospitalization, Other)
  Sender: FDA-Public Use
  Company Number: IE-PFIZER INC-2011006593

PATIENT
  Age: 35 Year
  Sex: Female

DRUGS (2)
  1. IRINOTECAN HCL [Suspect]
  2. PANITUMUMAB [Suspect]
     Indication: COLORECTAL CANCER
     Dosage: UNK
     Dates: start: 20080617

REACTIONS (6)
  - VISUAL ACUITY REDUCED [None]
  - RASH [None]
  - DIPLOPIA [None]
  - HYPOGLYCAEMIA [None]
  - VISION BLURRED [None]
  - RASH GENERALISED [None]
